FAERS Safety Report 8777006 (Version 2)
Quarter: 2012Q4

REPORT INFORMATION
  Report Type: 
  Country: IT (occurrence: IT)
  Receive Date: 20120911
  Receipt Date: 20121005
  Transmission Date: 20130627
  Serious: Yes (Hospitalization)
  Sender: FDA-Public Use
  Company Number: IT-GLAXOSMITHKLINE-B0829395A

PATIENT
  Age: 59 Year
  Sex: Female

DRUGS (1)
  1. RYTHMOL [Suspect]
     Indication: SINUS TACHYCARDIA
     Dosage: 325MG Per day
     Route: 048
     Dates: start: 20080101

REACTIONS (4)
  - Erosive oesophagitis [Unknown]
  - Chest pain [Not Recovered/Not Resolved]
  - Odynophagia [Not Recovered/Not Resolved]
  - Oesophageal mucosa erythema [Unknown]
